FAERS Safety Report 10095001 (Version 2)
Quarter: 2014Q2

REPORT INFORMATION
  Report Type: Spontaneous
  Country: US (occurrence: US)
  Receive Date: 20140422
  Receipt Date: 20140523
  Transmission Date: 20141212
  Serious: No
  Sender: FDA-Public Use
  Company Number: US-BAYER-2014-058411

PATIENT
  Age: 90 Year
  Sex: Female
  Weight: 40.82 kg

DRUGS (2)
  1. ALEVE TABLET [Suspect]
     Dosage: 1 DF, BID
     Route: 048
     Dates: start: 201402
  2. CALTRATE [CALCIUM CARBONATE] [Concomitant]

REACTIONS (2)
  - Incorrect drug administration duration [None]
  - Intentional product misuse [None]
